FAERS Safety Report 4917758-5 (Version None)
Quarter: 2006Q1

REPORT INFORMATION
  Report Type: 
  Country: None (occurrence: None)
  Receive Date: 20060221
  Receipt Date: 20060213
  Transmission Date: 20060701
  Serious: Yes (Other)
  Sender: FDA-Public Use
  Company Number: US-BRISTOL-MYERS SQUIBB COMPANY-13280946

PATIENT
  Age: 89 Year
  Sex: Male

DRUGS (11)
  1. GATIFLOXACIN [Suspect]
     Indication: BRONCHITIS
     Route: 048
  2. METOPROLOL [Concomitant]
  3. ASPIRIN [Concomitant]
  4. QUINAPRIL [Concomitant]
  5. FUROSEMIDE [Concomitant]
  6. DIGOXIN [Concomitant]
  7. SIMVASTATIN [Concomitant]
  8. IRON SULFATETHIAMIN COMPOUND TAB [Concomitant]
  9. TAMSULOSIN HCL [Concomitant]
  10. GLYBURIDE [Concomitant]
  11. ROSIGLITAZONE [Concomitant]

REACTIONS (2)
  - HEPATIC FUNCTION ABNORMAL [None]
  - HYPOGLYCAEMIA [None]
